FAERS Safety Report 25830212 (Version 2)
Quarter: 2025Q4

REPORT INFORMATION
  Report Type: Spontaneous
  Country: US (occurrence: US)
  Receive Date: 20250922
  Receipt Date: 20251023
  Transmission Date: 20260118
  Serious: No
  Sender: HETERO
  Company Number: US-HETERO-HET2025US05511

PATIENT
  Age: 6 Year
  Sex: Male
  Weight: 47 kg

DRUGS (1)
  1. LEVOCETIRIZINE [Suspect]
     Active Substance: LEVOCETIRIZINE
     Indication: Product used for unknown indication
     Dosage: UNK, BID
     Route: 048

REACTIONS (1)
  - Accidental overdose [Unknown]

NARRATIVE: CASE EVENT DATE: 20250910
